FAERS Safety Report 11876573 (Version 1)
Quarter: 2015Q4

REPORT INFORMATION
  Report Type: Spontaneous
  Country: US (occurrence: US)
  Receive Date: 20151229
  Receipt Date: 20151229
  Transmission Date: 20160305
  Serious: No
  Sender: FDA-Public Use
  Company Number: US-ASTRAZENECA-2015SF26947

PATIENT
  Sex: Female
  Weight: 59 kg

DRUGS (6)
  1. FLONASE [Concomitant]
     Active Substance: FLUTICASONE PROPIONATE
     Dosage: AS REQUIRED
  2. SYMBICORT [Suspect]
     Active Substance: BUDESONIDE\FORMOTEROL FUMARATE DIHYDRATE
     Indication: ASTHMA
     Dosage: 80 / 4.5 MCG, 2 PUFFS EVERY 12 HOURS AS NEEDED
     Route: 055
  3. SYMBICORT [Suspect]
     Active Substance: BUDESONIDE\FORMOTEROL FUMARATE DIHYDRATE
     Indication: SEASONAL ALLERGY
     Dosage: 160 / 4.5 MCG, AS REQUIRED
     Route: 055
  4. SYMBICORT [Suspect]
     Active Substance: BUDESONIDE\FORMOTEROL FUMARATE DIHYDRATE
     Indication: SEASONAL ALLERGY
     Dosage: 80 / 4.5 MCG, 2 PUFFS EVERY 12 HOURS AS NEEDED
     Route: 055
  5. SYMBICORT [Suspect]
     Active Substance: BUDESONIDE\FORMOTEROL FUMARATE DIHYDRATE
     Indication: ASTHMA
     Dosage: 160 / 4.5 MCG, AS REQUIRED
     Route: 055
  6. ZYRTEC [Concomitant]
     Active Substance: CETIRIZINE HYDROCHLORIDE
     Route: 048

REACTIONS (5)
  - Drug dose omission [Unknown]
  - Dyspnoea [Unknown]
  - Product quality issue [Unknown]
  - Malaise [Unknown]
  - Intentional product misuse [Unknown]
